FAERS Safety Report 5162094-8 (Version None)
Quarter: 2006Q4

REPORT INFORMATION
  Report Type: 
  Country: None (occurrence: None)
  Receive Date: 20061121
  Receipt Date: 20061114
  Transmission Date: 20070319
  Serious: Yes (Death, Other)
  Sender: FDA-Public Use
  Company Number: 2006US001740

PATIENT
  Age: 64 Year
  Sex: Male

DRUGS (10)
  1. AMBISOME [Suspect]
     Indication: BRONCHOPULMONARY ASPERGILLOSIS
     Dosage: SEE IMAGE, IV DRIP
     Route: 041
     Dates: start: 20060706, end: 20060710
  2. AMBISOME [Suspect]
     Indication: BRONCHOPULMONARY ASPERGILLOSIS
     Dosage: SEE IMAGE, IV DRIP
     Route: 041
     Dates: start: 20060714
  3. DISOPYRAMIDE [Suspect]
  4. FUNGUARD           (MICAFUNGIN SODIUM) [Concomitant]
  5. MEROPEN                  (MEROPENEM) [Concomitant]
  6. AMIKACIN SULFATE [Concomitant]
  7. VENOGLOBULIN-I [Concomitant]
  8. ALBUMIN (HUMAN) [Concomitant]
  9. LASIX [Concomitant]
  10. RED BLOOD CELLS [Concomitant]

REACTIONS (9)
  - ATRIAL FIBRILLATION [None]
  - BLOOD PRESSURE INCREASED [None]
  - CARDIAC ARREST [None]
  - CHILLS [None]
  - FLUSHING [None]
  - HYPOTHERMIA [None]
  - TREMOR [None]
  - VENTRICULAR FIBRILLATION [None]
  - VENTRICULAR TACHYCARDIA [None]
